FAERS Safety Report 13859778 (Version 4)
Quarter: 2017Q4

REPORT INFORMATION
  Report Type: Spontaneous
  Country: GB (occurrence: GB)
  Receive Date: 20170811
  Receipt Date: 20171207
  Transmission Date: 20180320
  Serious: Yes (Death, Other)
  Sender: FDA-Public Use
  Company Number: GB-PFIZER INC-2017342329

PATIENT
  Age: 76 Year
  Sex: Male
  Weight: 76 kg

DRUGS (4)
  1. CIPROFLOXACIN HCL [Suspect]
     Active Substance: CIPROFLOXACIN HYDROCHLORIDE
     Indication: BIOPSY PROSTATE
     Dosage: 1 DF, 1X/DAY
     Route: 042
     Dates: start: 20160919, end: 20160919
  2. GENTAMICIN. [Concomitant]
     Active Substance: GENTAMICIN
     Indication: BIOPSY PROSTATE
     Dosage: 1 DF, SINGLE
     Route: 042
     Dates: start: 20160919, end: 20160919
  3. CIPROFLOXACIN HYDROCHLORIDE. [Suspect]
     Active Substance: CIPROFLOXACIN HYDROCHLORIDE
     Indication: INFECTION PROPHYLAXIS
     Dosage: 500 MG, 2X/DAY
     Route: 048
     Dates: start: 20160919, end: 20160924
  4. METROGYL [Concomitant]
     Active Substance: METRONIDAZOLE
     Indication: BIOPSY PROSTATE
     Dosage: 1 DF, SINGLE
     Route: 042
     Dates: start: 20160919, end: 20160919

REACTIONS (5)
  - Completed suicide [Fatal]
  - Agitation [Fatal]
  - Confusional state [Fatal]
  - Dysgraphia [Fatal]
  - Paranoia [Fatal]

NARRATIVE: CASE EVENT DATE: 201609
